FAERS Safety Report 6038352-1 (Version None)
Quarter: 2009Q1

REPORT INFORMATION
  Report Type: 
  Country: None (occurrence: None)
  Receive Date: 20090115
  Receipt Date: 20090108
  Transmission Date: 20090719
  Serious: Yes (Hospitalization, Other)
  Sender: FDA-Public Use
  Company Number: BR-AVENTIS-200910346GDDC

PATIENT
  Age: 74 Year
  Sex: Male
  Weight: 80 kg

DRUGS (11)
  1. LANTUS [Suspect]
     Route: 058
     Dates: start: 20050101, end: 20081201
  2. LANTUS [Suspect]
     Route: 058
     Dates: start: 20090101
  3. OPTIPEN (INSULIN PUMP) [Suspect]
     Dates: start: 20050101, end: 20081201
  4. OPTIPEN (INSULIN PUMP) [Suspect]
     Dates: start: 20090101
  5. PANTOZOL                           /01263202/ [Concomitant]
     Indication: GASTRIC ULCER
     Dosage: DOSE: 1 TABLET IN FASTING
     Route: 048
     Dates: start: 20090101
  6. ISCOVER [Concomitant]
     Dates: start: 20090101
  7. SUSTRATE [Concomitant]
     Dates: start: 20090101
  8. VASOGARD [Concomitant]
     Dates: start: 20090101
  9. SOMALGIN                           /00009201/ [Concomitant]
     Dosage: DOSE: AFTER LUNCH
  10. PREVENCOR                          /01326102/ [Concomitant]
     Dates: start: 20090101
  11. NOVORAPID [Concomitant]
     Dosage: FREQUENCY: BEFORE MEALS
     Route: 058

REACTIONS (4)
  - BLINDNESS [None]
  - CONDITION AGGRAVATED [None]
  - CORONARY ARTERY OCCLUSION [None]
  - DIABETES MELLITUS [None]
